FAERS Safety Report 6453169-1 (Version None)
Quarter: 2009Q4

REPORT INFORMATION
  Report Type: 
  Country: None (occurrence: None)
  Receive Date: 20091117
  Receipt Date: 20091029
  Transmission Date: 20100525
  Serious: Yes (Death, Other)
  Sender: FDA-Public Use
  Company Number: 2009-2521

PATIENT
  Sex: Female

DRUGS (1)
  1. APO-GO AMPOULES (APO-GO) (APOMORPHINE HYDROCHLORIDE) (APOMORPHINE  HYD [Suspect]
     Indication: PARKINSON'S DISEASE
     Dosage: 50 MG 2 TO 4 TIMES DAILY (NOT REPORTED), SUBCUTANEOUS
     Route: 058
     Dates: start: 20071201

REACTIONS (2)
  - LIVER DISORDER [None]
  - PANCREATIC CARCINOMA [None]
